FAERS Safety Report 7930107-3 (Version None)
Quarter: 2011Q4

REPORT INFORMATION
  Report Type: 
  Country: None (occurrence: None)
  Receive Date: 20111108
  Receipt Date: 20101228
  Transmission Date: 20120403
  Serious: Yes (Other)
  Sender: FDA-Public Use
  Company Number: PHHY2010US88921

PATIENT
  Sex: Female

DRUGS (3)
  1. NAPROXEN (ALEVE) [Concomitant]
  2. LASIX [Concomitant]
  3. ZOMETA [Suspect]
     Indication: BREAST CANCER STAGE IV

REACTIONS (3)
  - ARTHRALGIA [None]
  - NEOPLASM MALIGNANT [None]
  - PELVIC PAIN [None]
